FAERS Safety Report 8159019-X (Version None)
Quarter: 2012Q1

REPORT INFORMATION
  Report Type: 
  Country: None (occurrence: None)
  Receive Date: 20120223
  Receipt Date: 20120215
  Transmission Date: 20120608
  Serious: No
  Sender: FDA-Public Use
  Company Number: US-BAYER-2012-015114

PATIENT
  Age: 34 Year
  Sex: Male

DRUGS (2)
  1. STAXYN [Suspect]
     Dosage: 10 MG, UNK
  2. STAXYN [Suspect]
     Dosage: UNK

REACTIONS (1)
  - PRODUCT TASTE ABNORMAL [None]
